FAERS Safety Report 7936717-1 (Version None)
Quarter: 2011Q4

REPORT INFORMATION
  Report Type: 
  Country: None (occurrence: None)
  Receive Date: 20111123
  Receipt Date: 20111116
  Transmission Date: 20120403
  Serious: Yes (Death, Other)
  Sender: FDA-Public Use
  Company Number: JP-GENZYME-THYM-1002119

PATIENT
  Sex: Male
  Weight: 70 kg

DRUGS (17)
  1. PLATELETS, CONCENTRATED [Concomitant]
     Indication: PRODUCT USED FOR UNKNOWN INDICATION
     Dosage: UNK
     Dates: start: 20100201, end: 20100617
  2. ACETAMINOPHEN [Concomitant]
     Indication: PREMEDICATION
     Dosage: UNK DF, UNK
     Route: 048
     Dates: end: 20100521
  3. DIPHENHYDRAMINE HCL [Concomitant]
     Indication: PREMEDICATION
     Dosage: UNK DF, UNK
     Route: 048
     Dates: start: 20100516, end: 20100520
  4. RED CELLS MAP [Concomitant]
     Indication: PRODUCT USED FOR UNKNOWN INDICATION
     Dosage: UNK
     Dates: start: 20100201, end: 20100617
  5. GLICLAZIDE [Concomitant]
     Indication: DIABETES MELLITUS
     Dosage: UNK DF, UNK
     Route: 048
     Dates: start: 20100201, end: 20100526
  6. ITRACONAZOLE [Concomitant]
     Indication: INFECTION PROPHYLAXIS
     Dosage: UNK DF, UNK
     Route: 048
     Dates: start: 20100521, end: 20100617
  7. FILGRASTIM [Concomitant]
     Indication: APLASTIC ANAEMIA
     Dosage: UNK
     Route: 065
     Dates: start: 20100521, end: 20100613
  8. METHYLPREDNISOLONE SODIUM SUCCINATE [Concomitant]
     Indication: PREMEDICATION
     Dosage: UNK
     Dates: start: 20100517, end: 20100521
  9. THYMOGLOBULIN [Suspect]
     Indication: APLASTIC ANAEMIA
     Dosage: 137.5 MG, QD
     Route: 042
     Dates: start: 20100517, end: 20100521
  10. CYCLOSPORINE [Concomitant]
     Indication: APLASTIC ANAEMIA
     Dosage: UNK
     Route: 048
     Dates: start: 20100516, end: 20100617
  11. ZOLPIDEM TARTRATE [Concomitant]
     Indication: INSOMNIA
     Dosage: UNK DF, UNK
     Route: 048
     Dates: start: 20100531, end: 20100617
  12. LEVOFLOXACIN [Concomitant]
     Indication: INFECTION PROPHYLAXIS
     Dosage: UNK
     Route: 048
     Dates: end: 20100615
  13. MECOBALAMIN [Concomitant]
     Indication: PRODUCT USED FOR UNKNOWN INDICATION
     Dosage: UNK DF, UNK
     Route: 048
     Dates: start: 20100616, end: 20100617
  14. URSODIOL [Concomitant]
     Indication: CHOLELITHOTOMY
     Dosage: UNK DF, UNK
     Route: 048
     Dates: start: 20100201, end: 20100617
  15. LANSOPRAZOLE [Concomitant]
     Indication: PROPHYLAXIS
     Dosage: UNK DF, UNK
     Route: 048
     Dates: end: 20100617
  16. MAGNESIUM OXIDE [Concomitant]
     Indication: PROPHYLAXIS
     Dosage: UNK DF, UNK
     Route: 048
     Dates: end: 20100616
  17. PREDNISOLONE [Concomitant]
     Indication: PREMEDICATION
     Dosage: UNK
     Dates: start: 20100521, end: 20100612

REACTIONS (3)
  - VOMITING [None]
  - CEREBRAL HAEMORRHAGE [None]
  - FALL [None]
